FAERS Safety Report 10132843 (Version 1)
Quarter: 2014Q2

REPORT INFORMATION
  Report Type: Spontaneous
  Country: US (occurrence: US)
  Receive Date: 20140428
  Receipt Date: 20140428
  Transmission Date: 20141212
  Serious: Yes (Other)
  Sender: FDA-Public Use
  Company Number: US-UCBSA-119015

PATIENT
  Age: 60 Year
  Sex: Male

DRUGS (1)
  1. NEUPRO [Suspect]
     Indication: PARKINSON^S DISEASE
     Dosage: UNKNOWN DOSE

REACTIONS (1)
  - Angioedema [Unknown]
